FAERS Safety Report 12947541 (Version 8)
Quarter: 2021Q1

REPORT INFORMATION
  Report Type: Report from Study
  Country: US (occurrence: US)
  Receive Date: 20161116
  Receipt Date: 20210312
  Transmission Date: 20210419
  Serious: Yes (Hospitalization, Other)
  Sender: FDA-Public Use
  Company Number: US-TAKEDA-2016TUS020159

PATIENT
  Age: 59 Year
  Sex: Female
  Weight: 82.54 kg

DRUGS (28)
  1. ROBAXIN [Concomitant]
     Active Substance: METHOCARBAMOL
     Indication: MUSCLE SPASMS
     Dosage: UNK
     Route: 048
  2. LYODERM [Concomitant]
     Indication: PAIN IN EXTREMITY
  3. VITAMIN D3 [Concomitant]
     Active Substance: CHOLECALCIFEROL
     Indication: OSTEOPOROSIS
     Dosage: UNK UNK, QD
     Route: 048
  4. MAGNESIUM [Concomitant]
     Active Substance: MAGNESIUM
     Dosage: 500 MILLIGRAM, QD
     Route: 048
  5. VEDOLIZUMAB [Suspect]
     Active Substance: VEDOLIZUMAB
     Indication: CROHN^S DISEASE
     Dosage: 300 MILLIGRAM
     Route: 042
     Dates: start: 2015
  6. EFFEXOR [Concomitant]
     Active Substance: VENLAFAXINE HYDROCHLORIDE
     Indication: DEPRESSION
     Dosage: UNK UNK, QD
  7. VITAMIN D2 [Concomitant]
     Active Substance: ERGOCALCIFEROL
     Indication: OSTEOPOROSIS
     Dosage: UNK UNK, 1/WEEK
     Route: 048
  8. CATAPRES [Concomitant]
     Active Substance: CLONIDINE HYDROCHLORIDE
     Indication: HYPERHIDROSIS
     Dosage: 0.2 MILLIGRAM
  9. METHADONE [Concomitant]
     Active Substance: METHADONE HYDROCHLORIDE
     Indication: ARTHRALGIA
  10. METHADONE [Concomitant]
     Active Substance: METHADONE HYDROCHLORIDE
     Indication: SPINAL PAIN
  11. NUCYNTA [Concomitant]
     Active Substance: TAPENTADOL HYDROCHLORIDE
     Dosage: 100 MILLIGRAM, BID
  12. CYMBALTA [Concomitant]
     Active Substance: DULOXETINE HYDROCHLORIDE
     Indication: DEPRESSION
     Dosage: 60 MILLIGRAM, BID
     Route: 048
  13. VIT B 12 [Concomitant]
     Active Substance: CYANOCOBALAMIN
     Dosage: UNK UNK, MONTHLY
     Route: 058
  14. VEDOLIZUMAB [Suspect]
     Active Substance: VEDOLIZUMAB
     Dosage: 300 MILLIGRAM
     Route: 042
     Dates: start: 20170403
  15. LYODERM [Concomitant]
     Indication: NECK PAIN
     Dosage: UNK
     Route: 061
  16. KLONOPIN [Concomitant]
     Active Substance: CLONAZEPAM
     Indication: ANXIETY
     Dosage: 1 MILLIGRAM, BID
  17. METHADONE [Concomitant]
     Active Substance: METHADONE HYDROCHLORIDE
     Indication: ABDOMINAL PAIN
     Dosage: UNK
  18. CALCIUM [Concomitant]
     Active Substance: CALCIUM
     Indication: OSTEOPOROSIS
     Dosage: UNK UNK, QD
     Route: 048
  19. DULERA [Concomitant]
     Active Substance: FORMOTEROL FUMARATE DIHYDRATE\MOMETASONE FUROATE
     Indication: BRONCHITIS
     Dosage: UNK
  20. BIOTENE                            /03475601/ [Concomitant]
     Active Substance: SODIUM FLUORIDE\SODIUM MONOFLUOROPHOSPHATE
     Dosage: UNK
     Route: 048
  21. LOMOTIL [Concomitant]
     Active Substance: ATROPINE SULFATE\DIPHENOXYLATE HYDROCHLORIDE
     Dosage: UNK
     Route: 048
  22. VEDOLIZUMAB [Suspect]
     Active Substance: VEDOLIZUMAB
     Dosage: 300 MILLIGRAM
     Route: 042
     Dates: start: 20201214
  23. NUCYNTA [Concomitant]
     Active Substance: TAPENTADOL HYDROCHLORIDE
     Indication: PAIN
     Dosage: 75 MILLIGRAM, BID
     Route: 048
  24. DITROPAN [Concomitant]
     Active Substance: OXYBUTYNIN CHLORIDE
     Indication: URINE ABNORMALITY
     Dosage: UNK
     Route: 048
     Dates: start: 20170306
  25. NEXIUM [Concomitant]
     Active Substance: ESOMEPRAZOLE MAGNESIUM
     Indication: GASTROOESOPHAGEAL REFLUX DISEASE
     Dosage: 60 MILLIGRAM, BID
     Route: 048
  26. ALBUTEROL                          /00139501/ [Concomitant]
     Active Substance: ALBUTEROL
     Indication: BRONCHITIS
     Dosage: UNK
  27. BIOFREEZE                          /01638601/ [Concomitant]
     Dosage: UNK
     Route: 061
  28. BENTYL [Concomitant]
     Active Substance: DICYCLOMINE HYDROCHLORIDE
     Dosage: UNK
     Route: 048

REACTIONS (28)
  - Nasal ulcer [Unknown]
  - Neck injury [Not Recovered/Not Resolved]
  - Fatigue [Not Recovered/Not Resolved]
  - Head injury [Unknown]
  - Arthropathy [Unknown]
  - Amnesia [Not Recovered/Not Resolved]
  - Thyroid mass [Not Recovered/Not Resolved]
  - Skin ulcer [Unknown]
  - Weight increased [Unknown]
  - Pain [Recovered/Resolved]
  - Facial bones fracture [Unknown]
  - Migraine [Not Recovered/Not Resolved]
  - Alopecia [Unknown]
  - Feeling cold [Unknown]
  - Food craving [Unknown]
  - Product dose omission issue [Unknown]
  - Crohn^s disease [Recovered/Resolved]
  - Night sweats [Not Recovered/Not Resolved]
  - Basal cell carcinoma [Unknown]
  - Adhesion [Recovered/Resolved]
  - Dental caries [Recovered/Resolved]
  - Fall [Not Recovered/Not Resolved]
  - Abdominal pain [Unknown]
  - Hypersensitivity [Unknown]
  - Nephrolithiasis [Not Recovered/Not Resolved]
  - Bacterial infection [Not Recovered/Not Resolved]
  - Contusion [Unknown]
  - Urinary tract infection [Unknown]

NARRATIVE: CASE EVENT DATE: 20170523
